FAERS Safety Report 6466980-8 (Version None)
Quarter: 2009Q4

REPORT INFORMATION
  Report Type: 
  Country: None (occurrence: None)
  Receive Date: 20091202
  Receipt Date: 20091119
  Transmission Date: 20100525
  Serious: Yes (Other)
  Sender: FDA-Public Use
  Company Number: DE-PFIZER INC-2009300748

PATIENT
  Age: 28 Year
  Sex: Male

DRUGS (2)
  1. ZIPRASIDONE HCL [Suspect]
     Indication: SCHIZOPHRENIA, PARANOID TYPE
     Dosage: UNK
  2. RISPERIDONE [Suspect]
     Indication: SCHIZOPHRENIA, PARANOID TYPE
     Dosage: UNK

REACTIONS (3)
  - ANXIETY [None]
  - TOURETTE'S DISORDER [None]
  - WEIGHT INCREASED [None]
